FAERS Safety Report 15111132 (Version 4)
Quarter: 2018Q3

REPORT INFORMATION
  Report Type: Spontaneous
  Country: BR (occurrence: BR)
  Receive Date: 20180705
  Receipt Date: 20180817
  Transmission Date: 20181010
  Serious: Yes (Other)
  Sender: FDA-Public Use
  Company Number: BR-PFIZER INC-2012316756

PATIENT
  Age: 68 Year
  Sex: Female

DRUGS (8)
  1. OLMETEC [Suspect]
     Active Substance: OLMESARTAN MEDOXOMIL
     Indication: HYPERTENSION
     Dosage: 40 MG, ONCE DAILY
     Dates: start: 2009, end: 201805
  2. XALATAN [Suspect]
     Active Substance: LATANOPROST
     Dosage: 1 DROP AT NIGHT IN EACH EYE
     Dates: start: 2011, end: 2018
  3. OLMETEC [Suspect]
     Active Substance: OLMESARTAN MEDOXOMIL
     Dosage: 40 MG ONCE DAILY (AT NIGHT)
     Dates: start: 2011, end: 2018
  4. NORVASC [Suspect]
     Active Substance: AMLODIPINE BESYLATE
     Dosage: 5 MG, ONCE DAILY (IN THE MORNING)
     Dates: start: 2011
  5. GLIFAGE [Concomitant]
     Active Substance: METFORMIN HYDROCHLORIDE
     Indication: DIABETES MELLITUS
     Dosage: UNK
     Dates: start: 2006
  6. SYNTHROID [Concomitant]
     Active Substance: LEVOTHYROXINE SODIUM
     Indication: THYROID DISORDER
     Dosage: UNK
     Dates: start: 2002
  7. NORVASC [Suspect]
     Active Substance: AMLODIPINE BESYLATE
     Indication: HYPERTENSION
     Dosage: 5 MG, ONCE DAILY
     Dates: start: 2009, end: 20121209
  8. XALATAN [Suspect]
     Active Substance: LATANOPROST
     Indication: GLAUCOMA
     Dosage: 3UG (TWO DROPS), ONCE A DAY
     Dates: start: 2007, end: 201805

REACTIONS (6)
  - Blood cholesterol increased [Recovered/Resolved]
  - Osteoporosis [Recovered/Resolved]
  - Dizziness [Recovered/Resolved]
  - Cataract [Not Recovered/Not Resolved]
  - Malaise [Recovered/Resolved]
  - Headache [Recovered/Resolved]

NARRATIVE: CASE EVENT DATE: 2010
